FAERS Safety Report 9494365 (Version 1)
Quarter: 2013Q3

REPORT INFORMATION
  Report Type: Spontaneous
  Country: FR (occurrence: FR)
  Receive Date: 20130903
  Receipt Date: 20130903
  Transmission Date: 20140515
  Serious: Yes (Hospitalization, Other)
  Sender: FDA-Public Use
  Company Number: FR-JNJFOC-20130816073

PATIENT
  Age: 87 Year
  Sex: Male

DRUGS (9)
  1. XARELTO [Suspect]
     Indication: CEREBROVASCULAR ACCIDENT PROPHYLAXIS
     Route: 048
     Dates: start: 201302, end: 201305
  2. XARELTO [Suspect]
     Indication: ATRIAL FIBRILLATION
     Route: 048
     Dates: start: 201302, end: 201305
  3. KARDEGIC [Suspect]
     Indication: ISCHAEMIC STROKE
     Route: 048
  4. KARDEGIC [Suspect]
     Indication: ISCHAEMIC STROKE
     Route: 048
  5. FERROGRAD C [Concomitant]
     Route: 048
  6. CARDENSIEL [Concomitant]
     Indication: HYPERTENSION
     Route: 048
  7. LASILIX [Concomitant]
     Indication: HYPERTENSION
     Route: 048
  8. RAMIPRIL [Concomitant]
     Indication: HYPERTENSION
     Route: 048
  9. INEXIUM [Concomitant]
     Indication: PROPHYLAXIS
     Route: 048

REACTIONS (4)
  - Melaena [Recovered/Resolved with Sequelae]
  - Gastric ulcer [Recovering/Resolving]
  - Anaemia [Recovered/Resolved]
  - Asthenia [Recovered/Resolved]
